FAERS Safety Report 19679329 (Version 1)
Quarter: 2021Q3

REPORT INFORMATION
  Report Type: Spontaneous
  Country: US (occurrence: US)
  Receive Date: 20210810
  Receipt Date: 20210810
  Transmission Date: 20211014
  Serious: No
  Sender: FDA-Public Use
  Company Number: None

PATIENT
  Age: 10 Year
  Sex: Female
  Weight: 23.4 kg

DRUGS (2)
  1. NITROUS OXIDE. [Suspect]
     Active Substance: NITROUS OXIDE
     Indication: TOOTH EXTRACTION
     Route: 055
  2. LIDOCAINE. [Suspect]
     Active Substance: LIDOCAINE
     Indication: TOOTH EXTRACTION
     Route: 058

REACTIONS (8)
  - Lethargy [None]
  - Oropharyngeal pain [None]
  - Chills [None]
  - Hyperhidrosis [None]
  - Pyrexia [None]
  - Moaning [None]
  - Agitation [None]
  - Pallor [None]

NARRATIVE: CASE EVENT DATE: 20210809
